FAERS Safety Report 8018399-6 (Version None)
Quarter: 2012Q1

REPORT INFORMATION
  Report Type: 
  Country: None (occurrence: None)
  Receive Date: 20120103
  Receipt Date: 20111227
  Transmission Date: 20120608
  Serious: No
  Sender: FDA-Public Use
  Company Number: US-JNJFOC-20110204156

PATIENT
  Sex: Male

DRUGS (3)
  1. INVEGA SUSTENNA [Suspect]
     Route: 030
     Dates: start: 20110209
  2. INVEGA SUSTENNA [Suspect]
     Indication: SCHIZOPHRENIA
     Route: 030
     Dates: start: 20110202
  3. INVEGA SUSTENNA [Suspect]
     Route: 030
     Dates: start: 20110113

REACTIONS (3)
  - PSYCHOTIC DISORDER [None]
  - INJECTION SITE PAIN [None]
  - PRODUCT QUALITY ISSUE [None]
